FAERS Safety Report 11719438 (Version 1)
Quarter: 2015Q4

REPORT INFORMATION
  Report Type: Spontaneous
  Country: US (occurrence: None)
  Receive Date: 20151109
  Receipt Date: 20151109
  Transmission Date: 20160304
  Serious: No
  Sender: FDA-Public Use
  Company Number: None

PATIENT
  Age: 48 Year
  Sex: Female
  Weight: 61.24 kg

DRUGS (1)
  1. SMX/TMP 3MX/TMP 800MG-160MG [Suspect]
     Active Substance: SULFAMETHOXAZOLE\TRIMETHOPRIM
     Indication: ACNE
     Route: 048
     Dates: start: 20151106, end: 20151108

REACTIONS (5)
  - Nausea [None]
  - Headache [None]
  - Chills [None]
  - Neck pain [None]
  - Asthenia [None]

NARRATIVE: CASE EVENT DATE: 20151108
